FAERS Safety Report 6456552-3 (Version None)
Quarter: 2009Q4

REPORT INFORMATION
  Report Type: 
  Country: None (occurrence: None)
  Receive Date: 20091125
  Receipt Date: 20091119
  Transmission Date: 20100525
  Serious: Yes (Other)
  Sender: FDA-Public Use
  Company Number: US-BAYER-200916953BCC

PATIENT
  Sex: Female

DRUGS (1)
  1. CAMPHO-PHENIQUE [Suspect]
     Indication: ORAL HERPES
     Route: 061

REACTIONS (2)
  - BURNING SENSATION [None]
  - SKIN EXFOLIATION [None]
